FAERS Safety Report 7397539-6 (Version None)
Quarter: 2011Q1

REPORT INFORMATION
  Report Type: 
  Country: None (occurrence: None)
  Receive Date: 20110328
  Receipt Date: 20110322
  Transmission Date: 20110831
  Serious: Yes (Other)
  Sender: FDA-Public Use
  Company Number: A0919337A

PATIENT
  Age: 40 Year
  Sex: Female

DRUGS (1)
  1. SODIUM FLUORIDE + POTASSIUM NITRATE TOOTHPASTE (SODIUM FLUORIDE + POTA [Suspect]
     Indication: DENTAL CARE
     Dosage: DENTAL
     Route: 004
     Dates: start: 20110310, end: 20110315

REACTIONS (12)
  - ORAL PAIN [None]
  - GLOSSITIS [None]
  - RASH [None]
  - DYSPHONIA [None]
  - CONDITION AGGRAVATED [None]
  - TONGUE DISORDER [None]
  - HYPERSENSITIVITY [None]
  - GLOSSODYNIA [None]
  - FATIGUE [None]
  - ASTHMA [None]
  - STOMATITIS [None]
  - COUGH [None]
